APPROVED DRUG PRODUCT: ACYCLOVIR
Active Ingredient: ACYCLOVIR
Strength: 800MG
Dosage Form/Route: TABLET;ORAL
Application: A075211 | Product #002 | TE Code: AB
Applicant: AUROBINDO PHARMA USA INC
Approved: Sep 28, 1998 | RLD: No | RS: No | Type: RX